FAERS Safety Report 7323586-6 (Version None)
Quarter: 2011Q1

REPORT INFORMATION
  Report Type: 
  Country: None (occurrence: None)
  Receive Date: 20110301
  Receipt Date: 20110218
  Transmission Date: 20110831
  Serious: Yes (Other)
  Sender: FDA-Public Use
  Company Number: US-ROCHE-761779

PATIENT
  Age: 61 Year
  Sex: Female

DRUGS (2)
  1. HERCEPTIN [Suspect]
     Indication: BREAST CANCER
     Route: 065
     Dates: start: 20100101
  2. FEMARA [Suspect]
     Indication: BREAST CANCER
     Route: 065
     Dates: start: 20100101

REACTIONS (1)
  - HEPATOTOXICITY [None]
